FAERS Safety Report 4535141-1 (Version None)
Quarter: 2004Q4

REPORT INFORMATION
  Report Type: 
  Country: None (occurrence: None)
  Receive Date: 20041214
  Receipt Date: 20041001
  Transmission Date: 20050328
  Serious: No
  Sender: FDA-Public Use
  Company Number: 2004238402US

PATIENT
  Age: 84 Year
  Sex: Female
  Weight: 68 kg

DRUGS (2)
  1. BEXTRA [Suspect]
     Indication: PAIN
     Dosage: 10 MG, BID
     Dates: start: 20040930
  2. TEGRETOL [Concomitant]

REACTIONS (1)
  - FEELING ABNORMAL [None]
